FAERS Safety Report 25784518 (Version 2)
Quarter: 2025Q4

REPORT INFORMATION
  Report Type: Report from Study
  Country: US (occurrence: US)
  Receive Date: 20250910
  Receipt Date: 20251014
  Transmission Date: 20260118
  Serious: Yes (Hospitalization)
  Sender: AMNEAL
  Company Number: US-AMNEAL PHARMACEUTICALS-2025-AMRX-03439

PATIENT
  Sex: Female

DRUGS (1)
  1. OPICAPONE [Suspect]
     Active Substance: OPICAPONE
     Indication: Parkinson^s disease
     Dosage: (50 MG) 1 CAPSULES, 1 /DAY IN THE MORNING
     Route: 048

REACTIONS (2)
  - Fall [Recovering/Resolving]
  - Off label use [Unknown]
